FAERS Safety Report 7294677-3 (Version None)
Quarter: 2011Q1

REPORT INFORMATION
  Report Type: 
  Country: None (occurrence: None)
  Receive Date: 20110216
  Receipt Date: 20110209
  Transmission Date: 20110831
  Serious: Yes (Other)
  Sender: FDA-Public Use
  Company Number: US-PFIZER INC-2010113297

PATIENT
  Sex: Male
  Weight: 63.492 kg

DRUGS (6)
  1. XANAX [Suspect]
     Dosage: UNK
  2. LEXAPRO [Concomitant]
  3. NIACIN [Concomitant]
  4. ACETYLSALICYLIC ACID [Concomitant]
     Dosage: UNK
  5. PRISTIQ [Suspect]
     Indication: DEPRESSION
     Dosage: 50 MG, 1X/DAY
     Route: 048
     Dates: start: 20100701
  6. PRISTIQ [Suspect]
     Indication: ANXIETY

REACTIONS (7)
  - ANXIETY [None]
  - NERVOUSNESS [None]
  - AGITATION [None]
  - BLOOD PRESSURE INCREASED [None]
  - INSOMNIA [None]
  - DEPRESSION [None]
  - NAUSEA [None]
